FAERS Safety Report 5963158-9 (Version None)
Quarter: 2008Q4

REPORT INFORMATION
  Report Type: 
  Country: None (occurrence: None)
  Receive Date: 20081120
  Receipt Date: 20081120
  Transmission Date: 20090506
  Serious: Yes (Other)
  Sender: FDA-Public Use
  Company Number: None

PATIENT
  Age: 74 Year
  Sex: Male
  Weight: 90.7194 kg

DRUGS (1)
  1. FLOMAX [Suspect]
     Indication: PROSTATE CANCER
     Dosage: 0.4MG CAPSULE ONCE DAILY PO
     Route: 048
     Dates: start: 20070924, end: 20080927

REACTIONS (7)
  - CATARACT [None]
  - EYE DISORDER [None]
  - LENS DISORDER [None]
  - MYODESOPSIA [None]
  - PHOTOPSIA [None]
  - PUPILLARY DISORDER [None]
  - VITREOUS DISORDER [None]
